FAERS Safety Report 7721705-0 (Version None)
Quarter: 2011Q3

REPORT INFORMATION
  Report Type: 
  Country: None (occurrence: None)
  Receive Date: 20110825
  Receipt Date: 20110809
  Transmission Date: 20111222
  Serious: Yes (Death, Other)
  Sender: FDA-Public Use
  Company Number: 2011MA011579

PATIENT
  Age: 22 Year
  Sex: Male

DRUGS (4)
  1. ALPRAZOLAM [Suspect]
     Dosage: 0.14 UG/G AT AUTOPSY
  2. MITRAGYNINE (NO PREF. NAME) [Suspect]
     Indication: TOXICITY TO VARIOUS AGENTS
     Dosage: 0.07 UG/G
  3. O-DESMETHYLTRAMADOL (NO PREF. NAME) [Suspect]
     Indication: TOXICITY TO VARIOUS AGENTS
     Dosage: 0.4 UG/G
  4. ETHANOL (ETHANOL) [Suspect]
     Indication: TOXICITY TO VARIOUS AGENTS
     Dosage: 0.09 UG/G

REACTIONS (2)
  - TOXICITY TO VARIOUS AGENTS [None]
  - PULMONARY CONGESTION [None]
